FAERS Safety Report 7073196-3 (Version None)
Quarter: 2010Q4

REPORT INFORMATION
  Report Type: 
  Country: None (occurrence: None)
  Receive Date: 20101029
  Receipt Date: 20101020
  Transmission Date: 20110411
  Serious: Yes (Other)
  Sender: FDA-Public Use
  Company Number: US-MYLANLABS-2010S1019394

PATIENT
  Age: 67 Year
  Sex: Female

DRUGS (6)
  1. FENTANYL [Suspect]
     Indication: PANCREATITIS ACUTE
     Route: 062
  2. FENTANYL [Suspect]
     Indication: PAIN
     Route: 062
  3. DEMEROL [Suspect]
     Indication: PANCREATITIS ACUTE
  4. DEMEROL [Suspect]
     Indication: PAIN
  5. MORPHINE [Suspect]
     Indication: PANCREATITIS ACUTE
  6. MORPHINE [Suspect]
     Indication: PAIN

REACTIONS (5)
  - AMNESIA [None]
  - BRAIN INJURY [None]
  - OVERDOSE [None]
  - RESPIRATORY ARREST [None]
  - THERAPY NAIVE [None]
